FAERS Safety Report 9723791 (Version 2)
Quarter: 2013Q4

REPORT INFORMATION
  Report Type: Spontaneous
  Country: IT (occurrence: IT)
  Receive Date: 20131202
  Receipt Date: 20131206
  Transmission Date: 20140711
  Serious: Yes (Death, Hospitalization)
  Sender: FDA-Public Use
  Company Number: IT-SA-2013SA122665

PATIENT
  Age: 73 Year
  Sex: Male

DRUGS (5)
  1. OXALIPLATIN [Suspect]
     Indication: COLON CANCER METASTATIC
     Dosage: INFUSION
     Route: 065
     Dates: start: 201211
  2. FLUOROURACIL [Concomitant]
     Indication: METASTASES TO LYMPH NODES
     Dates: start: 201201
  3. LEUCOVORIN [Concomitant]
     Indication: METASTASES TO LYMPH NODES
     Dates: start: 201201
  4. IRINOTECAN [Concomitant]
     Indication: METASTASES TO LYMPH NODES
     Dates: start: 201201
  5. CAPECITABINE [Concomitant]
     Indication: COLON CANCER METASTATIC
     Dates: start: 201211

REACTIONS (8)
  - Thrombotic thrombocytopenic purpura [Fatal]
  - Thrombocytopenia [Fatal]
  - Dyspnoea [Fatal]
  - Pyrexia [Fatal]
  - Tachycardia [Fatal]
  - Haemolytic anaemia [Fatal]
  - Renal failure [Unknown]
  - Blood creatinine increased [Unknown]
